FAERS Safety Report 24351933 (Version 1)
Quarter: 2024Q3

REPORT INFORMATION
  Report Type: Spontaneous
  Country: CN (occurrence: CN)
  Receive Date: 20240923
  Receipt Date: 20240923
  Transmission Date: 20241017
  Serious: No
  Sender: ROCHE
  Company Number: CN-ROCHE-3576314

PATIENT
  Age: 69 Year
  Sex: Male

DRUGS (3)
  1. HERCEPTIN [Suspect]
     Active Substance: TRASTUZUMAB
     Indication: Oesophageal neoplasm
     Route: 041
     Dates: start: 20240511, end: 20240511
  2. FLUOROURACIL [Suspect]
     Active Substance: FLUOROURACIL
     Indication: Oesophageal neoplasm
     Route: 042
     Dates: start: 20240511, end: 20240515
  3. CISPLATIN [Suspect]
     Active Substance: CISPLATIN
     Indication: Oesophageal neoplasm
     Route: 042
     Dates: start: 20240511, end: 20240511

REACTIONS (3)
  - Granulocyte count decreased [Recovered/Resolved]
  - White blood cell count decreased [Recovered/Resolved]
  - Off label use [Unknown]

NARRATIVE: CASE EVENT DATE: 20240516
